FAERS Safety Report 7958927-X (Version None)
Quarter: 2011Q4

REPORT INFORMATION
  Report Type: 
  Country: None (occurrence: None)
  Receive Date: 20111206
  Receipt Date: 20111128
  Transmission Date: 20120403
  Serious: Yes (Hospitalization, Other)
  Sender: FDA-Public Use
  Company Number: US-ELI_LILLY_AND_COMPANY-US201002002446

PATIENT
  Sex: Female
  Weight: 60.317 kg

DRUGS (25)
  1. FORTEO [Suspect]
     Dosage: 20 UG, QD
  2. VITAMIN D [Concomitant]
     Dosage: 4000 U, QD
  3. SYNTHROID [Concomitant]
  4. ASPIRIN [Concomitant]
     Dosage: UNK
  5. CALCIUM 600 PLUS VITAMIN D [Concomitant]
     Dosage: 3 DF, QD
  6. FORTEO [Suspect]
     Indication: OSTEOPOROSIS
     Dosage: 20 UG, DAILY (1/D)
     Route: 065
     Dates: start: 20091007, end: 20100203
  7. FOLIC ACID [Concomitant]
     Indication: ANAEMIA
     Dosage: UNK, DAILY (1/D)
  8. DIOVAN [Concomitant]
     Indication: HYPERTENSION
     Dosage: UNK, DAILY (1/D)
  9. CALCIUM [Concomitant]
     Indication: OSTEOPOROSIS
     Dosage: 1500 U, DAILY (1/D)
  10. CALCIUM [Concomitant]
     Dosage: 2000 MG, QD
  11. CALCIUM D-500 [Concomitant]
     Dosage: UNK
  12. LEFLUNOMIDE [Concomitant]
     Indication: RHEUMATOID ARTHRITIS
     Dosage: 10 MG, QD
  13. VITAMIN D [Concomitant]
  14. FORTEO [Suspect]
     Dosage: 20 UG, QD
  15. FORTEO [Suspect]
     Dosage: 20 UG, QD
  16. ASPIRIN [Concomitant]
     Indication: CARDIAC DISORDER
     Dosage: 2 DF, QD
  17. FORTEO [Suspect]
     Dosage: 20 UG, DAILY (1/D)
     Route: 065
     Dates: start: 20100205
  18. METHOTREXATE [Concomitant]
     Indication: RHEUMATOID ARTHRITIS
     Dosage: 2.5 MG, WEEKLY (1/W)
  19. FORTEO [Suspect]
     Dosage: 20 UG, DAILY (1/D)
  20. CRESTOR [Concomitant]
     Indication: BLOOD CHOLESTEROL ABNORMAL
     Dosage: UNK, DAILY (1/D)
     Route: 065
  21. ATENOLOL [Concomitant]
     Indication: HYPERTENSION
     Dosage: UNK, DAILY (1/D)
  22. ATENOLOL [Concomitant]
     Dosage: UNK, BID
  23. EXTRA STRENGTH TYLENOL [Concomitant]
     Indication: MUSCULOSKELETAL STIFFNESS
     Dosage: UNK, EACH MORNING
  24. ARAVA [Concomitant]
     Indication: RHEUMATOID ARTHRITIS
     Dosage: 10 MG, UNK
  25. LEVOTHYROXINE SODIUM [Concomitant]
     Dosage: 100 UG, QD

REACTIONS (28)
  - PARATHYROID DISORDER [None]
  - SPEECH DISORDER [None]
  - BLOOD CALCIUM DECREASED [None]
  - THYROID NEOPLASM [None]
  - TREMOR [None]
  - ABASIA [None]
  - ERYTHEMA [None]
  - PAIN IN EXTREMITY [None]
  - INSOMNIA [None]
  - DYSPHONIA [None]
  - OROPHARYNGEAL PAIN [None]
  - CHEST DISCOMFORT [None]
  - BLOOD MAGNESIUM DECREASED [None]
  - MUSCULOSKELETAL PAIN [None]
  - OEDEMA PERIPHERAL [None]
  - ATRIAL FIBRILLATION [None]
  - THROAT CANCER [None]
  - RHEUMATOID ARTHRITIS [None]
  - GOITRE [None]
  - THYROID CYST [None]
  - FATIGUE [None]
  - MOBILITY DECREASED [None]
  - ADVERSE EVENT [None]
  - THYROID DISORDER [None]
  - WEIGHT DECREASED [None]
  - DRUG DOSE OMISSION [None]
  - MUSCULOSKELETAL STIFFNESS [None]
  - ASTHENIA [None]
